FAERS Safety Report 25195029 (Version 1)
Quarter: 2025Q2

REPORT INFORMATION
  Report Type: Report from Study
  Country: US (occurrence: US)
  Receive Date: 20250415
  Receipt Date: 20250415
  Transmission Date: 20250717
  Serious: Yes (Other)
  Sender: ACADIA PHARMACEUTICALS
  Company Number: US-ACADIA PHARMACEUTICALS INC.-ACA-2025-PIM-004181

PATIENT
  Sex: Male

DRUGS (24)
  1. NUPLAZID [Suspect]
     Active Substance: PIMAVANSERIN TARTRATE
     Indication: Parkinson^s disease
     Dosage: 34 MILLIGRAM, QD
     Route: 048
     Dates: start: 2022
  2. RIVASTIGMINE [Concomitant]
     Active Substance: RIVASTIGMINE
  3. HYDROCHLOROTHIAZIDE [Concomitant]
     Active Substance: HYDROCHLOROTHIAZIDE
  4. VITAMIN B12 [Concomitant]
     Active Substance: CYANOCOBALAMIN
  5. CARBIDOPA LEVODOPA [Concomitant]
     Active Substance: CARBIDOPA\LEVODOPA
  6. ROSUVASTATIN [Concomitant]
     Active Substance: ROSUVASTATIN
  7. CLONAZEPAM [Concomitant]
     Active Substance: CLONAZEPAM
  8. CITALOPRAM [Concomitant]
     Active Substance: CITALOPRAM
  9. NITROSTAT [Concomitant]
     Active Substance: NITROGLYCERIN
  10. FENOFIBRATE [Concomitant]
     Active Substance: FENOFIBRATE
  11. MIDODRINE [Concomitant]
     Active Substance: MIDODRINE
  12. TAMSULOSIN [Concomitant]
     Active Substance: TAMSULOSIN
  13. CRESTOR [Concomitant]
     Active Substance: ROSUVASTATIN CALCIUM
  14. BUTALBITAL AND ACETAMINOPHEN [Concomitant]
     Active Substance: ACETAMINOPHEN\BUTALBITAL
  15. AMANTADINE [Concomitant]
     Active Substance: AMANTADINE
  16. MIRALAX [Concomitant]
     Active Substance: POLYETHYLENE GLYCOL 3350
  17. FOLIC ACID [Concomitant]
     Active Substance: FOLIC ACID
  18. FISH OIL [Concomitant]
     Active Substance: FISH OIL
  19. XADAGO [Concomitant]
     Active Substance: SAFINAMIDE MESYLATE
  20. OMEPRAZOLE [Concomitant]
     Active Substance: OMEPRAZOLE
  21. ASPIRIN [Concomitant]
     Active Substance: ASPIRIN
  22. HIGH DENSITY POLYETHYLENE [Concomitant]
     Active Substance: HIGH DENSITY POLYETHYLENE
  23. ISOSORBIDE [Concomitant]
     Active Substance: ISOSORBIDE
  24. TOPROLOL AM [Concomitant]

REACTIONS (4)
  - Cerebral haemorrhage [Unknown]
  - Fall [Unknown]
  - Muscular weakness [Unknown]
  - Fracture [Unknown]
